FAERS Safety Report 23982614 (Version 3)
Quarter: 2024Q4

REPORT INFORMATION
  Report Type: Spontaneous
  Country: US (occurrence: US)
  Receive Date: 20240617
  Receipt Date: 20241202
  Transmission Date: 20250114
  Serious: No
  Sender: PFIZER
  Company Number: US-PFIZER INC-202400192487

PATIENT
  Age: 66 Year
  Sex: Female

DRUGS (5)
  1. TUKYSA [Suspect]
     Active Substance: TUCATINIB
     Indication: Breast cancer female
     Dosage: 150 MG 2 CAPS TWICE PER DAY/ TABS TWICE DAILY ORALLY
     Route: 048
     Dates: start: 20240119, end: 20240515
  2. TUKYSA [Suspect]
     Active Substance: TUCATINIB
     Dosage: 150 MG 2 CAPS TWICE PER DAY/ TABS TWICE DAILY ORALLY
     Route: 048
  3. TUKYSA [Suspect]
     Active Substance: TUCATINIB
     Dosage: 150MG TAKE TWO TABLETS BY MOUTH TWICE DAILY
     Route: 048
     Dates: end: 20240701
  4. CAPECITABINE [Concomitant]
     Active Substance: CAPECITABINE
     Dosage: UNK
  5. TRASTUZUMAB [Concomitant]
     Active Substance: TRASTUZUMAB
     Dosage: UNK

REACTIONS (3)
  - Diarrhoea [Not Recovered/Not Resolved]
  - Neoplasm progression [Unknown]
  - Illness [Unknown]

NARRATIVE: CASE EVENT DATE: 20240515
